FAERS Safety Report 14411152 (Version 1)
Quarter: 2018Q1

REPORT INFORMATION
  Report Type: Report from Study
  Country: US (occurrence: US)
  Receive Date: 20180119
  Receipt Date: 20180119
  Transmission Date: 20180509
  Serious: Yes (Hospitalization, Other)
  Sender: FDA-Public Use
  Company Number: US-TAKEDA-2018MPI000499

PATIENT

DRUGS (2)
  1. VELCADE [Suspect]
     Active Substance: BORTEZOMIB
     Dosage: 1 MG/M2, UNK
     Route: 042
  2. VELCADE [Suspect]
     Active Substance: BORTEZOMIB
     Indication: PROPHYLAXIS AGAINST TRANSPLANT REJECTION
     Dosage: 1.3 MG/M2, UNK
     Route: 042

REACTIONS (7)
  - Encephalopathy [Unknown]
  - Ataxia [Unknown]
  - Hallucination, visual [Unknown]
  - Herpes virus infection [Unknown]
  - Peritoneal dialysis complication [Unknown]
  - Herpes zoster disseminated [Unknown]
  - Peritonitis [Unknown]
